FAERS Safety Report 4424192-3 (Version None)
Quarter: 2004Q3

REPORT INFORMATION
  Report Type: 
  Country: None (occurrence: None)
  Receive Date: 20040812
  Receipt Date: 20040730
  Transmission Date: 20050211
  Serious: Yes (Other)
  Sender: FDA-Public Use
  Company Number: 200417608GDDC

PATIENT
  Sex: 0

DRUGS (3)
  1. LANTUS [Suspect]
  2. GLUCOPHAGE [Concomitant]
  3. ACTOS [Concomitant]

REACTIONS (1)
  - DECREASED INSULIN REQUIREMENT [None]
